FAERS Safety Report 6190449-1 (Version None)
Quarter: 2009Q2

REPORT INFORMATION
  Report Type: 
  Country: None (occurrence: None)
  Receive Date: 20090513
  Receipt Date: 20090513
  Transmission Date: 20091009
  Serious: Yes (Other)
  Sender: FDA-Public Use
  Company Number: None

PATIENT
  Sex: Male
  Weight: 92.5338 kg

DRUGS (1)
  1. BOTOX [Suspect]

REACTIONS (3)
  - DRUG INEFFECTIVE [None]
  - INJECTION SITE REACTION [None]
  - UNEVALUABLE EVENT [None]
